FAERS Safety Report 22040400 (Version 1)
Quarter: 2023Q1

REPORT INFORMATION
  Report Type: Spontaneous
  Country: US (occurrence: None)
  Receive Date: 20230224
  Receipt Date: 20230224
  Transmission Date: 20230418
  Serious: Yes (Other)
  Sender: FDA-Public Use
  Company Number: None

PATIENT
  Age: 45 Year
  Sex: Female
  Weight: 117 kg

DRUGS (12)
  1. INVEGA SUSTENNA [Suspect]
     Active Substance: PALIPERIDONE PALMITATE
     Dosage: OTHER QUANTITY : 1 INJECTION(S);?OTHER FREQUENCY : MONTHLY;?
     Route: 058
     Dates: start: 20221228, end: 20230224
  2. ATORVASTATIN [Concomitant]
     Active Substance: ATORVASTATIN
  3. LITHIUM [Concomitant]
     Active Substance: LITHIUM
  4. LOXAPINE [Concomitant]
     Active Substance: LOXAPINE
  5. LISINOPRIL [Concomitant]
     Active Substance: LISINOPRIL
  6. FIASP INSULIN [Concomitant]
  7. BASAGLAR [Concomitant]
     Active Substance: INSULIN GLARGINE
  8. GLIPIZIDE [Concomitant]
     Active Substance: GLIPIZIDE
  9. JANUVIA [Concomitant]
     Active Substance: SITAGLIPTIN PHOSPHATE
  10. ASPIRIN [Concomitant]
     Active Substance: ASPIRIN
  11. TYLENOL [Concomitant]
     Active Substance: ACETAMINOPHEN
  12. ANTIHISTAMINE WITH DECONGESTANT [Concomitant]

REACTIONS (3)
  - Blood glucose increased [None]
  - Anorgasmia [None]
  - Sexual dysfunction [None]

NARRATIVE: CASE EVENT DATE: 20230224
